FAERS Safety Report 4503948-2 (Version None)
Quarter: 2004Q3

REPORT INFORMATION
  Report Type: 
  Country: None (occurrence: None)
  Receive Date: 20040927
  Receipt Date: 20040720
  Transmission Date: 20050211
  Serious: No
  Sender: FDA-Public Use
  Company Number: USA040773137

PATIENT
  Age: 13 Year
  Sex: Female
  Weight: 31 kg

DRUGS (4)
  1. STRATTERA [Suspect]
     Indication: ATTENTION DEFICIT/HYPERACTIVITY DISORDER
     Dosage: 25 MG DAY
     Dates: start: 20040201
  2. ZOLOFT [Concomitant]
  3. CONCERTA [Concomitant]
  4. PERIACTIN [Concomitant]

REACTIONS (7)
  - CRYING [None]
  - DECREASED APPETITE [None]
  - DISTURBANCE IN ATTENTION [None]
  - IRRITABILITY [None]
  - MOOD SWINGS [None]
  - SOMNOLENCE [None]
  - SUICIDAL IDEATION [None]
